FAERS Safety Report 11637077 (Version 1)
Quarter: 2015Q4

REPORT INFORMATION
  Report Type: Spontaneous
  Country: US (occurrence: None)
  Receive Date: 20151015
  Receipt Date: 20151015
  Transmission Date: 20160304
  Serious: Yes (Other)
  Sender: FDA-Public Use
  Company Number: None

PATIENT
  Age: 58 Year
  Sex: Female
  Weight: 58.97 kg

DRUGS (28)
  1. THEOPHALLINE [Concomitant]
  2. ADDERALL [Concomitant]
     Active Substance: AMPHETAMINE ASPARTATE\AMPHETAMINE SULFATE\DEXTROAMPHETAMINE SACCHARATE\DEXTROAMPHETAMINE SULFATE
  3. GABAPENTIN. [Concomitant]
     Active Substance: GABAPENTIN
  4. COD LIVER OIL [Concomitant]
     Active Substance: COD LIVER OIL
  5. ECHINACIA [Concomitant]
  6. ZINC [Concomitant]
     Active Substance: ZINC\ZINC CHLORIDE
  7. FLOVENT [Concomitant]
     Active Substance: FLUTICASONE PROPIONATE
  8. BELSOMRA [Suspect]
     Active Substance: SUVOREXANT
     Indication: INSOMNIA
     Dosage: 1/2 PILL AT BEDTIME TAKEN BY MOUTH
     Route: 048
     Dates: start: 20150417, end: 20151013
  9. ATIVAN [Concomitant]
     Active Substance: LORAZEPAM
  10. LOSORTAN [Concomitant]
  11. QUERCITAN [Concomitant]
  12. OMEGA FISH OIL [Concomitant]
     Active Substance: FISH OIL\OMEGA-3 FATTY ACIDS
  13. FLONASE [Concomitant]
     Active Substance: FLUTICASONE PROPIONATE
  14. GINGER ROOT [Concomitant]
  15. NATURE^S SUNSHINE ALJ [Concomitant]
  16. ZOLOFT [Concomitant]
     Active Substance: SERTRALINE HYDROCHLORIDE
  17. SINGULAIR [Concomitant]
     Active Substance: MONTELUKAST SODIUM
  18. INTAL [Concomitant]
     Active Substance: CROMOLYN SODIUM
  19. VIT D-3 [Concomitant]
  20. GARLIC. [Concomitant]
     Active Substance: GARLIC
  21. VITAMIN 3 [Concomitant]
  22. SEROQUEL [Concomitant]
     Active Substance: QUETIAPINE FUMARATE
  23. IRON [Concomitant]
     Active Substance: IRON
  24. NATURE^S SUNSHINE HISTABLOCK [Concomitant]
  25. LAMOTRIGINE. [Concomitant]
     Active Substance: LAMOTRIGINE
  26. WOMEN MULTIVITAMIN [Concomitant]
  27. CALCIUM CITRATE [Concomitant]
     Active Substance: CALCIUM CITRATE
  28. BROMALAIN [Concomitant]

REACTIONS (2)
  - Suicidal ideation [None]
  - Feelings of worthlessness [None]

NARRATIVE: CASE EVENT DATE: 20151014
